FAERS Safety Report 14244069 (Version 1)
Quarter: 2017Q4

REPORT INFORMATION
  Report Type: Report from Study
  Country: US (occurrence: US)
  Receive Date: 20171201
  Receipt Date: 20171201
  Transmission Date: 20180321
  Serious: No
  Sender: FDA-Public Use
  Company Number: PHEH2017US038289

PATIENT
  Sex: Male

DRUGS (1)
  1. OLOPATADINE. [Suspect]
     Active Substance: OLOPATADINE
     Indication: EYE DISORDER
     Route: 065

REACTIONS (1)
  - Drug ineffective [Unknown]
